FAERS Safety Report 9365788 (Version 1)
Quarter: 2013Q2

REPORT INFORMATION
  Report Type: Spontaneous
  Country: US (occurrence: None)
  Receive Date: 20130624
  Receipt Date: 20130624
  Transmission Date: 20140414
  Serious: Yes (Other)
  Sender: FDA-Public Use
  Company Number: None

PATIENT
  Age: 58 Year
  Sex: Male

DRUGS (1)
  1. COPAXONE 20MG TEVA NEUROSCIENCE INC [Suspect]
     Indication: MULTIPLE SCLEROSIS
     Dosage: 20MG DAILY SUBQ
     Route: 058
     Dates: start: 20120118, end: 20130620

REACTIONS (5)
  - Nausea [None]
  - Flushing [None]
  - Heart rate increased [None]
  - Dyspnoea [None]
  - Chest discomfort [None]
